FAERS Safety Report 8872700 (Version 2)
Quarter: 2012Q4

REPORT INFORMATION
  Report Type: Report from Study
  Country: FR (occurrence: FR)
  Receive Date: 20121030
  Receipt Date: 20121106
  Transmission Date: 20130627
  Serious: Yes (Death, Hospitalization)
  Sender: FDA-Public Use
  Company Number: FR-ROCHE-1150256

PATIENT
  Sex: Male

DRUGS (5)
  1. BEVACIZUMAB [Suspect]
     Indication: COLON CANCER
     Dosage: last cycle adminsitered before SAE:03/oct/2012
     Route: 065
  2. ELVORINE [Suspect]
     Indication: COLON CANCER
     Dosage: last cycle adminsitered before SAE:03/oct/2012, last dose administered:352 mg
     Route: 065
  3. 5-FU [Suspect]
     Indication: COLON CANCER
     Dosage: last cycle adminsitered before SAE:03/oct/2012, last dose administered 704mg in bolus
     Route: 065
  4. 5-FU [Suspect]
     Dosage: last dose administered: 4220 mg as continous
     Route: 065
  5. IRINOTECAN [Suspect]
     Indication: COLON CANCER
     Dosage: last cycle adminsitered before SAE:03/oct/2012, last dose administered:317mg
     Route: 065

REACTIONS (1)
  - General physical health deterioration [Fatal]
